FAERS Safety Report 6308517-X (Version None)
Quarter: 2009Q3

REPORT INFORMATION
  Report Type: 
  Country: None (occurrence: None)
  Receive Date: 20090813
  Receipt Date: 20090806
  Transmission Date: 20100115
  Serious: Yes (Hospitalization)
  Sender: FDA-Public Use
  Company Number: US-JNJFOC-20090803290

PATIENT
  Age: 60 Year
  Sex: Female
  Weight: 49.5 kg

DRUGS (13)
  1. DURAGESIC-100 [Suspect]
     Route: 062
  2. DURAGESIC-100 [Suspect]
     Indication: DRUG USE FOR UNKNOWN INDICATION
     Route: 062
  3. PROCRIT [Concomitant]
     Indication: ANAEMIA OF MALIGNANT DISEASE
     Route: 058
  4. REVLIMID [Concomitant]
     Route: 048
  5. REVLIMID [Concomitant]
     Indication: ANAEMIA OF MALIGNANT DISEASE
     Route: 048
  6. ASPIRIN [Concomitant]
  7. ACETAMINOPHEN AND HYDROCODONE BITARTRATE [Concomitant]
     Route: 065
  8. AMLODIPINE [Concomitant]
     Route: 065
  9. ATORVASTATIN [Concomitant]
     Route: 065
  10. CLONAZEPAM [Concomitant]
     Route: 065
  11. FLUTICASONE AND SALMETEROL [Concomitant]
     Route: 065
  12. FUROSEMIDE [Concomitant]
     Route: 065
  13. NYSTATIN [Concomitant]
     Route: 048

REACTIONS (7)
  - ACUTE MYOCARDIAL INFARCTION [None]
  - ARTERIOSCLEROSIS CORONARY ARTERY [None]
  - BILIARY DILATATION [None]
  - EMPHYSEMA [None]
  - FALL [None]
  - HAEMOGLOBIN DECREASED [None]
  - MENTAL STATUS CHANGES [None]
